FAERS Safety Report 6610294-X (Version None)
Quarter: 2010Q1

REPORT INFORMATION
  Report Type: 
  Country: None (occurrence: None)
  Receive Date: 20100302
  Receipt Date: 20090817
  Transmission Date: 20100710
  Serious: No
  Sender: FDA-Public Use
  Company Number: US-TYCO HEALTHCARE/MALLINCKRODT-T200901572

PATIENT
  Age: 55 Year
  Sex: Female

DRUGS (2)
  1. TECHNESCAN [Suspect]
     Indication: BONE SCAN
     Dosage: UNK
     Dates: start: 20090817, end: 20090817
  2. ULTRA-TECHNEKOW [Suspect]
     Indication: BONE SCAN
     Dosage: 21.4 MCI, UNK
     Dates: start: 20090817, end: 20090817

REACTIONS (2)
  - DRUG DISPENSING ERROR [None]
  - INTERCEPTED DRUG ADMINISTRATION ERROR [None]
